FAERS Safety Report 10344724 (Version 1)
Quarter: 2014Q3

REPORT INFORMATION
  Report Type: Spontaneous
  Country: US (occurrence: None)
  Receive Date: 20140723
  Receipt Date: 20140723
  Transmission Date: 20150326
  Serious: Yes (Other)
  Sender: FDA-Public Use
  Company Number: AUR-APL-2014-07749

PATIENT
  Age: 64 Year
  Sex: Female

DRUGS (10)
  1. PREVACID [Suspect]
     Active Substance: LANSOPRAZOLE
     Indication: PRODUCT USED FOR UNKNOWN INDICATION
     Dosage: 15 MG, TWO TIMES A DAY, ORAL
     Route: 048
  2. VENTOLIN HFA [Suspect]
     Active Substance: ALBUTEROL SULFATE
     Indication: PRODUCT USED FOR UNKNOWN INDICATION
     Dosage: 2 PUFF, RESPIRATORY?
  3. BUPROPION HYDROCHLORIDE. [Suspect]
     Active Substance: BUPROPION HYDROCHLORIDE
     Indication: PRODUCT USED FOR UNKNOWN INDICATION
     Dosage: 30 MG, ONCE A DAY, ORAL
     Route: 048
  4. ESCITALOPRAM [Suspect]
     Active Substance: ESCITALOPRAM OXALATE
     Indication: PRODUCT USED FOR UNKNOWN INDICATION
     Dosage: 20 MG, ONCE A DAY, UNKNOWN
  5. ADVAIR HFA [Suspect]
     Active Substance: FLUTICASONE PROPIONATE\SALMETEROL XINAFOATE
     Indication: PRODUCT USED FOR UNKNOWN INDICATION
     Dosage: 1 PUFF, RESPIRATORY?
     Dates: start: 20130214
  6. TRAZODONE (TRAZODONE) UNKNOWN [Concomitant]
  7. FLUZONE /00780601/ (FLUCONAZOLE) UNKNOWN [Concomitant]
  8. HYDROXYZINE HYDROCHLORIDE. [Suspect]
     Active Substance: HYDROXYZINE HYDROCHLORIDE
     Indication: PRODUCT USED FOR UNKNOWN INDICATION
     Route: 048
  9. ESTERIFIED ESTROGENS AND METHYLTESTOSTERONE (ESTROGENS ESTERIFIED, METHYLTESTOSTERONE) UNKNOWN [Concomitant]
  10. LISINOPRIL (LISINOPRIL) UNKNOWN [Concomitant]

REACTIONS (1)
  - Renal failure chronic [None]

NARRATIVE: CASE EVENT DATE: 20140226
